FAERS Safety Report 12804015 (Version 1)
Quarter: 2016Q4

REPORT INFORMATION
  Report Type: Spontaneous
  Country: US (occurrence: US)
  Receive Date: 20161001
  Receipt Date: 20161001
  Transmission Date: 20170207
  Serious: Yes (Life-Threatening, Hospitalization)
  Sender: FDA-Public Use
  Company Number: None

PATIENT
  Age: 63 Year
  Sex: Male
  Weight: 99 kg

DRUGS (1)
  1. AMIODARONE [Suspect]
     Active Substance: AMIODARONE
     Indication: DRUG THERAPY
     Dates: start: 20160914, end: 20160929

REACTIONS (4)
  - Pulmonary toxicity [None]
  - Pulmonary oedema [None]
  - Atrial fibrillation [None]
  - Oedema peripheral [None]

NARRATIVE: CASE EVENT DATE: 20160914
